FAERS Safety Report 9476421 (Version 1)
Quarter: 2013Q3

REPORT INFORMATION
  Report Type: Spontaneous
  Country: US (occurrence: None)
  Receive Date: 20130823
  Receipt Date: 20130823
  Transmission Date: 20140515
  Serious: Yes (Hospitalization)
  Sender: FDA-Public Use
  Company Number: None

PATIENT
  Age: 86 Year
  Sex: Female
  Weight: 68 kg

DRUGS (2)
  1. RIVAROXABAN [Suspect]
     Indication: THROMBOSIS PROPHYLAXIS
     Route: 048
     Dates: start: 20130724, end: 20130727
  2. RIVAROXABAN [Suspect]
     Indication: HIP SURGERY
     Route: 048
     Dates: start: 20130724, end: 20130727

REACTIONS (1)
  - Deep vein thrombosis [None]
